FAERS Safety Report 9032662 (Version 1)
Quarter: 2013Q1

REPORT INFORMATION
  Report Type: Spontaneous
  Country: US (occurrence: None)
  Receive Date: 20130110
  Receipt Date: 20130110
  Transmission Date: 20140127
  Serious: Yes (Death, Other)
  Sender: FDA-Public Use
  Company Number: TPA2012A09050

PATIENT
  Age: 78 Year
  Sex: Male
  Weight: 89.2 kg

DRUGS (2)
  1. ACTOS (PIOGLITAZONE HYDROCHLORIDE) [Suspect]
     Indication: TYPE 2 DIABETES MELLITUS
     Dates: start: 200003, end: 20101224
  2. PRANDIN (DEFLAZACORT) (TABLETS) [Concomitant]

REACTIONS (2)
  - Bladder cancer [None]
  - Prostate cancer [None]
